FAERS Safety Report 6003637-1 (Version None)
Quarter: 2008Q4

REPORT INFORMATION
  Report Type: 
  Country: None (occurrence: None)
  Receive Date: 20081216
  Receipt Date: 20081204
  Transmission Date: 20090506
  Serious: Yes (Hospitalization)
  Sender: FDA-Public Use
  Company Number: US-ELI_LILLY_AND_COMPANY-US200811000224

PATIENT
  Sex: Female

DRUGS (13)
  1. FORTEO [Suspect]
     Indication: OSTEOPOROSIS
     Dosage: 20 UG, DAILY (1/D)
     Dates: start: 20070401, end: 20080101
  2. ESTRADIOL [Concomitant]
     Indication: HORMONE REPLACEMENT THERAPY
     Dosage: 4 MG, DAILY (1/D)
  3. VITAMIN D [Concomitant]
     Dosage: 100000 IU, MONTHLY (1/M)
  4. LITHOBID [Concomitant]
     Indication: BIPOLAR DISORDER
     Dosage: 1200 MG, DAILY (1/D)
  5. OXYBUTYNIN CHLORIDE [Concomitant]
     Dosage: 2 MG, DAILY (1/D)
  6. THIOTHIXENE [Concomitant]
     Dosage: 2 MG, DAILY (1/D)
  7. KLONOPIN [Concomitant]
     Dosage: 2 MG, DAILY (1/D)
  8. PROPRANOLOL [Concomitant]
     Dosage: 20 MG, DAILY (1/D)
  9. VITAMINS WITH MINERALS [Concomitant]
     Dosage: UNK, DAILY (1/D)
  10. TRILEPTAL [Concomitant]
     Dosage: 1500 MG, DAILY (1/D)
  11. ACIPHEX [Concomitant]
     Dosage: 20 MG, 2/D
  12. CELEBREX [Concomitant]
     Dosage: 200 MG, 2/D
  13. LEVOXYL [Concomitant]
     Dosage: 0.175 MG, DAILY (1/D)

REACTIONS (9)
  - ASTHENIA [None]
  - DRY EYE [None]
  - EYE DISORDER [None]
  - EYE PAIN [None]
  - EYELID DISORDER [None]
  - FATIGUE [None]
  - KNEE OPERATION [None]
  - MYALGIA [None]
  - PRURITUS GENERALISED [None]
